FAERS Safety Report 15774262 (Version 1)
Quarter: 2018Q4

REPORT INFORMATION
  Report Type: Spontaneous
  Country: DE (occurrence: DE)
  Receive Date: 20181229
  Receipt Date: 20181229
  Transmission Date: 20190205
  Serious: Yes (Hospitalization)
  Sender: FDA-Public Use
  Company Number: DE-TEVA-2018-DE-992352

PATIENT
  Age: 62 Year
  Sex: Female

DRUGS (5)
  1. CLOZAPIN [Suspect]
     Active Substance: CLOZAPINE
     Indication: PRODUCT USED FOR UNKNOWN INDICATION
     Dosage: 300 MILLIGRAM DAILY; SINCE A LONG TIME, ONGOING
     Route: 048
  2. ARIPIPRAZOLE. [Interacting]
     Active Substance: ARIPIPRAZOLE
     Indication: PRODUCT USED FOR UNKNOWN INDICATION
     Dosage: 30 MILLIGRAM DAILY; SINCE 2016, ONGOING
     Route: 048
     Dates: start: 2016
  3. DIPIPERON [Suspect]
     Active Substance: PIPAMPERONE
     Indication: PRODUCT USED FOR UNKNOWN INDICATION
     Dosage: 40 MILLIGRAM DAILY; SINCE 2016, ONGOING
     Route: 048
     Dates: start: 2016
  4. GASTROZEPIN [Concomitant]
     Active Substance: PIRENZEPINE HYDROCHLORIDE
     Indication: PRODUCT USED FOR UNKNOWN INDICATION
     Dosage: 50 MILLIGRAM DAILY; SINCE 2015, ONGOING
     Route: 048
     Dates: start: 2015
  5. PANTOZOL [Concomitant]
     Active Substance: PANTOPRAZOLE SODIUM
     Indication: PRODUCT USED FOR UNKNOWN INDICATION
     Dosage: 20 MILLIGRAM DAILY; SINCE 2015, ONGOING
     Route: 048
     Dates: start: 2015

REACTIONS (3)
  - Drug interaction [Recovering/Resolving]
  - Generalised tonic-clonic seizure [Recovering/Resolving]
  - Head injury [Recovered/Resolved]

NARRATIVE: CASE EVENT DATE: 20180302
